FAERS Safety Report 13015816 (Version 2)
Quarter: 2017Q1

REPORT INFORMATION
  Report Type: Spontaneous
  Country: GB (occurrence: GB)
  Receive Date: 20161212
  Receipt Date: 20170206
  Transmission Date: 20170428
  Serious: Yes (Other)
  Sender: FDA-Public Use
  Company Number: GB-AUROBINDO-AUR-APL-2016-14876

PATIENT
  Age: 28 Year
  Sex: Female
  Weight: 80 kg

DRUGS (1)
  1. MIRTAZAPINE 45MG [Suspect]
     Active Substance: MIRTAZAPINE
     Indication: ANXIETY
     Dosage: 45 MG, UNK
     Route: 048
     Dates: start: 20160704, end: 20161018

REACTIONS (2)
  - Fibromyalgia [Recovered/Resolved]
  - Folate deficiency [Unknown]

NARRATIVE: CASE EVENT DATE: 20160707
